FAERS Safety Report 6978051-2 (Version None)
Quarter: 2010Q3

REPORT INFORMATION
  Report Type: 
  Country: None (occurrence: None)
  Receive Date: 20100913
  Receipt Date: 20100830
  Transmission Date: 20110219
  Serious: No
  Sender: FDA-Public Use
  Company Number: US-ELI_LILLY_AND_COMPANY-US201006002529

PATIENT
  Sex: Female

DRUGS (5)
  1. FORTEO [Suspect]
     Indication: OSTEOPOROSIS
     Dosage: 20 UG, UNKNOWN
     Dates: start: 20090101
  2. SULFADIAZINE [Concomitant]
     Dosage: 500 MG, OTHER
  3. FOLIC ACID [Concomitant]
     Dosage: UNK, DAILY (1/D)
  4. COUMADIN [Concomitant]
  5. HEPARIN [Concomitant]

REACTIONS (1)
  - COUGH [None]
